FAERS Safety Report 24392082 (Version 1)
Quarter: 2024Q4

REPORT INFORMATION
  Report Type: Spontaneous
  Country: US (occurrence: US)
  Receive Date: 20241003
  Receipt Date: 20241003
  Transmission Date: 20250115
  Serious: No
  Sender: BIOLINERX
  Company Number: US-MIMS-BIOLMC-603

PATIENT
  Age: 56 Year
  Sex: Male

DRUGS (28)
  1. APHEXDA [Suspect]
     Active Substance: MOTIXAFORTIDE ACETATE
     Indication: Product used for unknown indication
     Dosage: UNK
     Route: 065
     Dates: start: 20240815
  2. DEXAMETHASONE [Concomitant]
     Active Substance: DEXAMETHASONE
     Indication: Premedication
     Dosage: 16 MILLIGRAM, 60MIN PRIOR TO INJECTION
     Route: 042
  3. DIPHENHYDRAMINE [Concomitant]
     Active Substance: DIPHENHYDRAMINE
     Indication: Premedication
     Dosage: 50 MILLIGRAM, 60 MIN PRIOR TO INJECTION
     Route: 048
  4. ACETAMINOPHEN [Concomitant]
     Active Substance: ACETAMINOPHEN
     Indication: Premedication
     Dosage: 650 MILLIGRAM, 60 MIN PRIOR TO INJECTION
     Route: 048
  5. FAMOTIDINE [Concomitant]
     Active Substance: FAMOTIDINE
     Indication: Premedication
     Dosage: 40 MILLIGRAM, 60 MIN PRIOR TO INJECTION
     Route: 048
  6. MONTELUKAST [Concomitant]
     Active Substance: MONTELUKAST
     Indication: Premedication
     Dosage: 10 MILLIGRAM, 60 MIN PRIOR TO INJECTION
     Route: 048
  7. LORATADINE [Concomitant]
     Active Substance: LORATADINE
     Indication: Premedication
     Dosage: 10 MILLIGRAM, QD, STARTED 4 DAYS PRIOR TO APHEXDA AND CONTINUED THROUGH COMPLETION OF STEM CELL COLL
     Route: 048
     Dates: start: 202408
  8. CYCLOPHOSPHAMIDE\BORTEZOMIB\DEXAMETHASONE [Concomitant]
     Active Substance: CYCLOPHOSPHAMIDE\BORTEZOMIB\DEXAMETHASONE
     Indication: Product used for unknown indication
     Dosage: 1 CYCLE
     Dates: start: 20231227
  9. CYCLOPHOSPHAMIDE\BORTEZOMIB\DEXAMETHASONE [Concomitant]
     Active Substance: CYCLOPHOSPHAMIDE\BORTEZOMIB\DEXAMETHASONE
     Dosage: UNK
     Dates: start: 20240105, end: 202408
  10. ELIQUIS [Concomitant]
     Active Substance: APIXABAN
     Indication: Product used for unknown indication
     Dosage: 2.5 MILLIGRAM, EVERY 12 HOURS
     Route: 048
  11. ROCALTROL [Concomitant]
     Active Substance: CALCITRIOL
     Indication: Product used for unknown indication
     Dosage: 0.25 MICROGRAM, QD A.M
     Route: 048
  12. TUMS [Concomitant]
     Active Substance: CALCIUM CARBONATE
     Indication: Product used for unknown indication
     Dosage: TAKE 1 DOSE DAILY
     Route: 048
  13. VITAMIN D3 [Concomitant]
     Active Substance: CHOLECALCIFEROL
     Indication: Product used for unknown indication
     Dosage: 4,000 UNITS TOTAL DAILY
     Route: 048
  14. CYCLOSPORINE [Concomitant]
     Active Substance: CYCLOSPORINE
     Indication: Product used for unknown indication
     Dosage: 1 DROP, QD
  15. ATIVAN [Concomitant]
     Active Substance: LORAZEPAM
     Indication: Anxiety
     Dosage: 0.5 MILLIGRAM, QD
     Route: 048
  16. LUMIGAN [Concomitant]
     Active Substance: BIMATOPROST
     Indication: Product used for unknown indication
     Dosage: 0.01 % EYE DROPS, 1 DROP EVERY NIGHT
  17. MIRCERA [Concomitant]
     Active Substance: METHOXY POLYETHYLENE GLYCOL-EPOETIN BETA
     Indication: Product used for unknown indication
     Dosage: 75 MICROGRAM, EVERY 4 WEEKS
  18. PRILOSEC [Concomitant]
     Active Substance: OMEPRAZOLE MAGNESIUM
     Indication: Product used for unknown indication
     Dosage: 40 MILLIGRAM, QD
     Route: 048
  19. ZOFRAN [Concomitant]
     Active Substance: ONDANSETRON HYDROCHLORIDE
     Indication: Nausea
     Dosage: 8 MILLIGRAM, EVERY 8 HOURS AS NEEDED
     Route: 048
  20. ZOFRAN [Concomitant]
     Active Substance: ONDANSETRON HYDROCHLORIDE
     Indication: Vomiting
  21. COMPAZINE [Concomitant]
     Active Substance: PROCHLORPERAZINE MALEATE
     Indication: Nausea
     Dosage: 10 MILLIGRAM, EVERY 6 HOURS AS NEEDED
     Route: 048
  22. COMPAZINE [Concomitant]
     Active Substance: PROCHLORPERAZINE MALEATE
     Indication: Vomiting
  23. SODIUM CHLORIDE [Concomitant]
     Active Substance: SODIUM CHLORIDE
     Indication: Nasal congestion
     Dosage: 0.65 %, ADMINISTER 1 SPRAY INTO EACH NOSTRIL AS NEEDED
  24. SODIUM CHLORIDE [Concomitant]
     Active Substance: SODIUM CHLORIDE
     Indication: Rhinitis
  25. SODIUM CHLORIDE [Concomitant]
     Active Substance: SODIUM CHLORIDE
     Indication: Product used for unknown indication
     Dosage: 5 %
     Route: 047
  26. SULFAMETHOXAZOLE\TRIMETHOPRIM [Concomitant]
     Active Substance: SULFAMETHOXAZOLE\TRIMETHOPRIM
     Dosage: TAKE 1 TABLET BY MOUTH EVERY MONDAY, WEDNESDAY, AND FRIDAY
     Route: 048
  27. VALTREX [Concomitant]
     Active Substance: VALACYCLOVIR HYDROCHLORIDE
     Indication: Product used for unknown indication
     Dosage: 500 MILLIGRAM, QD
     Route: 048
  28. BACTRIM [Concomitant]
     Active Substance: SULFAMETHOXAZOLE\TRIMETHOPRIM
     Indication: Product used for unknown indication
     Dosage: 1 TABLET BY MOUTH EVERY MONDAY, WEDNESDAY, AND FRIDAY

REACTIONS (1)
  - Hypersensitivity [Recovered/Resolved]

NARRATIVE: CASE EVENT DATE: 20240815
